FAERS Safety Report 5799624-9 (Version None)
Quarter: 2008Q3

REPORT INFORMATION
  Report Type: 
  Country: None (occurrence: None)
  Receive Date: 20080701
  Receipt Date: 20080701
  Transmission Date: 20090109
  Serious: Yes (Hospitalization)
  Sender: FDA-Public Use
  Company Number: None

PATIENT
  Sex: Female
  Weight: 77.5651 kg

DRUGS (2)
  1. DOCETAXEL [Suspect]
     Indication: BREAST CANCER
     Dosage: 100M/M2 (205MG) Q 3 WEEKS IV
     Route: 042
     Dates: start: 20080422
  2. NOV-002 [Suspect]
     Dosage: 60MG (IV / SQ)  Q 3WKS/1XDAYX20D  IV/SQ
     Route: 042
     Dates: start: 20080512

REACTIONS (11)
  - BALANCE DISORDER [None]
  - CONDITION AGGRAVATED [None]
  - FACIAL PARESIS [None]
  - HYPOAESTHESIA [None]
  - HYPOAESTHESIA FACIAL [None]
  - HYPOAESTHESIA ORAL [None]
  - MUSCULAR WEAKNESS [None]
  - OEDEMA PERIPHERAL [None]
  - PARAESTHESIA [None]
  - SENSATION OF HEAVINESS [None]
  - TONGUE PARALYSIS [None]
